FAERS Safety Report 6919979-9 (Version None)
Quarter: 2010Q3

REPORT INFORMATION
  Report Type: 
  Country: None (occurrence: None)
  Receive Date: 20100811
  Receipt Date: 20100728
  Transmission Date: 20110219
  Serious: Yes (Life-Threatening)
  Sender: FDA-Public Use
  Company Number: CN-MYLANLABS-2010S1013538

PATIENT
  Age: 9 Year
  Sex: Female

DRUGS (1)
  1. PHENYTOIN [Suspect]
     Dosage: 10 MG/KG/DAY
     Route: 048

REACTIONS (1)
  - GRAND MAL CONVULSION [None]
